FAERS Safety Report 20167258 (Version 1)
Quarter: 2021Q4

REPORT INFORMATION
  Report Type: Spontaneous
  Country: US (occurrence: US)
  Receive Date: 20211209
  Receipt Date: 20211209
  Transmission Date: 20220303
  Serious: Yes (Other)
  Sender: FDA-Public Use
  Company Number: US-BoehringerIngelheim-2021-BI-142672

PATIENT
  Age: 70 Year
  Sex: Female

DRUGS (1)
  1. COMBIVENT [Suspect]
     Active Substance: ALBUTEROL SULFATE\IPRATROPIUM BROMIDE
     Indication: Lung disorder
     Dosage: 20-100
     Dates: start: 20210205, end: 20211208

REACTIONS (3)
  - Haematological malignancy [Recovered/Resolved]
  - Asthma [Recovered/Resolved]
  - Pneumoconiosis [Recovered/Resolved]

NARRATIVE: CASE EVENT DATE: 20210205
